FAERS Safety Report 13871963 (Version 1)
Quarter: 2017Q3

REPORT INFORMATION
  Report Type: Spontaneous
  Country: FR (occurrence: FR)
  Receive Date: 20170816
  Receipt Date: 20170816
  Transmission Date: 20171127
  Serious: Yes (Disabling, Congenital Anomaly, Other)
  Sender: FDA-Public Use
  Company Number: FR-PFIZER INC-2017349888

PATIENT
  Sex: Female

DRUGS (5)
  1. ELISOR [Suspect]
     Active Substance: PRAVASTATIN SODIUM
     Indication: HEART TRANSPLANT
     Dosage: 10 MG, 1X/DAY
     Route: 064
     Dates: start: 201109, end: 20120610
  2. COVERAM [Concomitant]
     Active Substance: AMLODIPINE\PERINDOPRIL
     Indication: HYPERTENSION
     Dosage: 5 MG, 1X/DAY
     Route: 064
     Dates: start: 201109, end: 20111102
  3. ADVAGRAF [Suspect]
     Active Substance: TACROLIMUS
     Indication: HEART TRANSPLANT
     Dosage: 8 MG, 1X/DAY
     Route: 064
     Dates: start: 201109, end: 20120610
  4. SOLUPRED [Suspect]
     Active Substance: PREDNISOLONE
     Indication: IMMUNOSUPPRESSION
     Dosage: 7.5 MG, 1X/DAY
     Route: 064
     Dates: start: 201109, end: 20120610
  5. AMLOR [Suspect]
     Active Substance: AMLODIPINE BESYLATE
     Indication: HYPERTENSION
     Dosage: 5 MG, 1X/DAY
     Route: 064
     Dates: start: 20111102, end: 20120610

REACTIONS (3)
  - Umbilical cord around neck [Recovered/Resolved]
  - Maternal exposure during pregnancy [Not Recovered/Not Resolved]
  - Autism spectrum disorder [Not Recovered/Not Resolved]

NARRATIVE: CASE EVENT DATE: 20111102
